FAERS Safety Report 24222241 (Version 1)
Quarter: 2024Q3

REPORT INFORMATION
  Report Type: Spontaneous
  Country: US (occurrence: US)
  Receive Date: 20240819
  Receipt Date: 20240819
  Transmission Date: 20241017
  Serious: Yes (Hospitalization)
  Sender: AMNEAL
  Company Number: US-AMNEAL PHARMACEUTICALS-2024-AMRX-02929

PATIENT
  Sex: Female
  Weight: 68.027 kg

DRUGS (11)
  1. GABAPENTIN [Suspect]
     Active Substance: GABAPENTIN
     Indication: Nerve injury
     Dosage: 100 MILLIGRAM, 03 CAPSULES OF 100 MG AT MORNING AND AT NIGHT
     Route: 048
     Dates: start: 2016
  2. GABAPENTIN [Suspect]
     Active Substance: GABAPENTIN
     Indication: Pain
     Dosage: 200 MG AT MORNING AND 300 MG AT NIGH
     Route: 048
  3. ZOLOFT [Concomitant]
     Active Substance: SERTRALINE HYDROCHLORIDE
     Indication: Product used for unknown indication
     Dosage: (200 MG) 02 TABLETS, 1 /DAY
     Route: 048
  4. BYSTOLIC [Concomitant]
     Active Substance: NEBIVOLOL HYDROCHLORIDE
     Indication: Product used for unknown indication
     Dosage: (10 MG) 01 TABLETS, 1 /DAY
     Route: 048
     Dates: start: 2023
  5. ATORVASTATIN [Concomitant]
     Active Substance: ATORVASTATIN
     Indication: Product used for unknown indication
     Dosage: (80 MG) 01 TABLETS, 1 /DAY
     Route: 048
  6. ALDACTONE [Concomitant]
     Active Substance: SPIRONOLACTONE
     Indication: Product used for unknown indication
     Dosage: (25 MG) 01 TABLETS, DAILY
     Route: 048
     Dates: start: 2022
  7. XANAX [Concomitant]
     Active Substance: ALPRAZOLAM
     Indication: Product used for unknown indication
     Dosage: (01 MG) 01 TABLETS, DAILY
     Route: 048
  8. REMERON [Concomitant]
     Active Substance: MIRTAZAPINE
     Indication: Product used for unknown indication
     Dosage: (15 MG) 01 TABLETS, DAILY
     Route: 048
  9. FLECAINIDE [Concomitant]
     Active Substance: FLECAINIDE
     Indication: Product used for unknown indication
     Dosage: (50 MG) 01 TABLETS, DAILY
     Route: 048
  10. VALSARTAN [Concomitant]
     Active Substance: VALSARTAN
     Indication: Product used for unknown indication
     Dosage: (160 MG) 01 TABLETS, 2 /DAY
     Route: 048
  11. AMLODIPINE [Concomitant]
     Active Substance: AMLODIPINE BESYLATE
     Indication: Product used for unknown indication
     Dosage: (10 MG) 01 TABLETS, 1 /DAY
     Route: 048

REACTIONS (2)
  - Hypertension [Not Recovered/Not Resolved]
  - Treatment noncompliance [Unknown]

NARRATIVE: CASE EVENT DATE: 20230101
